FAERS Safety Report 16304339 (Version 1)
Quarter: 2019Q2

REPORT INFORMATION
  Report Type: Spontaneous
  Country: US (occurrence: US)
  Receive Date: 20190513
  Receipt Date: 20190513
  Transmission Date: 20190711
  Serious: No
  Sender: FDA-Public Use
  Company Number: US-PFIZER INC-2019198250

PATIENT
  Age: 55 Year
  Sex: Female

DRUGS (4)
  1. ALDACTONE [Suspect]
     Active Substance: SPIRONOLACTONE
     Dosage: UNK
  2. PROMETRIUM [Suspect]
     Active Substance: PROGESTERONE
     Dosage: UNK
  3. GLUTEN [Suspect]
     Active Substance: WHEAT GLUTEN
     Dosage: UNK
  4. BACTRIM DS [Suspect]
     Active Substance: SULFAMETHOXAZOLE\TRIMETHOPRIM
     Dosage: UNK

REACTIONS (1)
  - Drug hypersensitivity [Unknown]
